FAERS Safety Report 11331891 (Version 2)
Quarter: 2015Q3

REPORT INFORMATION
  Report Type: Spontaneous
  Country: US (occurrence: US)
  Receive Date: 20150803
  Receipt Date: 20150803
  Transmission Date: 20151125
  Serious: No
  Sender: FDA-Public Use
  Company Number: US-ELI_LILLY_AND_COMPANY-US200805000171

PATIENT
  Age: 10 Year
  Sex: Male

DRUGS (4)
  1. ZYPREXA [Suspect]
     Active Substance: OLANZAPINE
     Indication: BIPOLAR DISORDER
     Dosage: 5 MG, DAILY (1/D)
     Dates: start: 200710
  2. STRATTERA [Suspect]
     Active Substance: ATOMOXETINE HYDROCHLORIDE
     Indication: ATTENTION DEFICIT/HYPERACTIVITY DISORDER
     Dosage: 37 MG, UNK
     Dates: start: 2003
  3. RISPERDAL [Concomitant]
     Active Substance: RISPERIDONE
  4. CONCERTA [Concomitant]
     Active Substance: METHYLPHENIDATE HYDROCHLORIDE
     Indication: ATTENTION DEFICIT/HYPERACTIVITY DISORDER

REACTIONS (7)
  - Psychomotor hyperactivity [Not Recovered/Not Resolved]
  - Screaming [Unknown]
  - Anger [Recovered/Resolved]
  - Disturbance in attention [Not Recovered/Not Resolved]
  - Irritability [Not Recovered/Not Resolved]
  - Frustration [Not Recovered/Not Resolved]
  - Therapeutic product ineffective [Unknown]
